FAERS Safety Report 25751190 (Version 1)
Quarter: 2025Q3

REPORT INFORMATION
  Report Type: Spontaneous
  Country: US (occurrence: None)
  Receive Date: 20250831
  Receipt Date: 20250831
  Transmission Date: 20251021
  Serious: No
  Sender: FDA-CTU
  Company Number: None

PATIENT
  Age: 42 Year
  Sex: Female
  Weight: 67.5 kg

DRUGS (2)
  1. MENSTRUAL COMPLETE [Suspect]
     Active Substance: ACETAMINOPHEN\CAFFEINE\PYRILAMINE MALEATE
     Indication: Menstrual disorder
     Route: 048
     Dates: start: 20250830, end: 20250831
  2. Ibprophine [Concomitant]

REACTIONS (2)
  - Dysphonia [None]
  - Dysphonia [None]

NARRATIVE: CASE EVENT DATE: 20250830
